FAERS Safety Report 16793628 (Version 1)
Quarter: 2019Q3

REPORT INFORMATION
  Report Type: Spontaneous
  Country: NL (occurrence: NL)
  Receive Date: 20190911
  Receipt Date: 20190911
  Transmission Date: 20191005
  Serious: Yes (Other)
  Sender: FDA-Public Use
  Company Number: NL-TEVA-2019-NL-1103968

PATIENT
  Age: 82 Year
  Sex: Male
  Weight: 52 kg

DRUGS (14)
  1. PANTOPRAZOLE SODIUM. [Concomitant]
     Active Substance: PANTOPRAZOLE SODIUM
     Dosage: 20 MILLIGRAM , 2X DAILY 1 PCS
     Dates: start: 20190225
  2. MOVICOLON NATUR PDR V DRANK [Concomitant]
     Dosage: 1 DOSAGE FORMS, 1X DAY 1 PIECE
     Dates: start: 20190225
  3. TRIMBO AER 87/5/9MCG/D 120D [Concomitant]
     Dosage: 1 DOSAGE FORMS, 2X DAILY 1 DOSES
     Dates: start: 20190225
  4. LISINOPRIL 10MG TABLET [Concomitant]
     Dosage: 10 MILLIGRAM, 1X DAY 1 PIECE
     Dates: start: 20190225
  5. SALBUTAMOL/IPRATROPIUM VERNEVELVLST 1/0,2MG/ML [Concomitant]
     Dosage: 1 DOSAGE FORMS, IF NECESSARY, USE
     Dates: start: 20190412
  6. KOELZALF [Concomitant]
     Dosage: 1 DOSAGE FORMS, IF NECESSARY, USE
     Dates: start: 20190225
  7. PARACETAMOL TABLET  500MG [Concomitant]
     Active Substance: ACETAMINOPHEN
     Dosage: 1 DOSAGE FORMS, IF NECESSARY, USE
     Dates: start: 20190318
  8. DIVISUN TABLET 800IE COLECALCIFEROL TABLET   800IE [Concomitant]
     Dosage: 800 IU 1X DAY 1 PIECE
     Dates: start: 20190225
  9. CLOZAPINE TABLET, 6,25 MG (MILLIGRAM) [Suspect]
     Active Substance: CLOZAPINE
     Indication: DELUSION
     Dosage: 6, MILLIGRAM, 2DD1
     Dates: start: 20190802, end: 20190803
  10. NIZORAL 20MG/G CREME [Concomitant]
     Dosage: 1 DOSAGE FORMS, 2X DAILY APPLICATION
     Dates: start: 20190726
  11. CIPRAMIL DRUPPELVLOEISTOF 40MG/ML [Concomitant]
     Dosage: 3 GTT, 1X DAILY 3 DROPS
     Dates: start: 20190419
  12. DOXYCYCLINE 100MG DISPERTABLET [Concomitant]
     Dosage: 1 DOSAGE FORMS, FIRST DAY 2X, THEN 1X 1 PCS
     Dates: start: 20190420
  13. KETOCONAZOL 20MG/G SHAMPOO [Concomitant]
     Dosage: 1 DOSAGE FORMS, APPLY 2X PER WEEK
     Dates: start: 20190726
  14. CALOGEN NEUTRAAL [Concomitant]
     Dosage: 30 ML, 3X DAYS 30 MILLILITER
     Dates: start: 20190423

REACTIONS (1)
  - Depressed level of consciousness [Recovered/Resolved]

NARRATIVE: CASE EVENT DATE: 20190803
